FAERS Safety Report 24248065 (Version 1)
Quarter: 2024Q3

REPORT INFORMATION
  Report Type: Spontaneous
  Country: AU (occurrence: AU)
  Receive Date: 20240826
  Receipt Date: 20240826
  Transmission Date: 20241016
  Serious: Yes (Other)
  Sender: DR REDDYS
  Company Number: None

PATIENT
  Age: 50 Year
  Sex: Male

DRUGS (2)
  1. POSACONAZOLE [Suspect]
     Active Substance: POSACONAZOLE
     Indication: Product used for unknown indication
     Route: 065
  2. ISAVUCONAZOLE [Suspect]
     Active Substance: ISAVUCONAZOLE
     Indication: Product used for unknown indication
     Route: 065

REACTIONS (9)
  - Skin cancer [Unknown]
  - Basal cell carcinoma [Unknown]
  - Malignant melanoma [Unknown]
  - Squamous cell carcinoma [Unknown]
  - Alopecia [Unknown]
  - Arthralgia [Unknown]
  - Gastrointestinal disorder [Unknown]
  - Lethargy [Unknown]
  - Rash [Unknown]
